FAERS Safety Report 6627625-7 (Version None)
Quarter: 2010Q1

REPORT INFORMATION
  Report Type: 
  Country: None (occurrence: None)
  Receive Date: 20100308
  Receipt Date: 20100301
  Transmission Date: 20100710
  Serious: Yes (Other)
  Sender: FDA-Public Use
  Company Number: DSA_42658_2010

PATIENT
  Sex: Female

DRUGS (3)
  1. XENAZINE [Suspect]
     Indication: DYSTONIA
     Dosage: (25 MG BID ORAL), (25 MG TID ORAL)
     Route: 048
     Dates: start: 20091117, end: 20100101
  2. XENAZINE [Suspect]
     Indication: DYSTONIA
     Dosage: (25 MG BID ORAL), (25 MG TID ORAL)
     Route: 048
     Dates: start: 20100201, end: 20100224
  3. VALIUM [Concomitant]

REACTIONS (14)
  - ABDOMINAL DISCOMFORT [None]
  - ASTHENIA [None]
  - DRUG INEFFECTIVE [None]
  - DYSKINESIA [None]
  - DYSTONIA [None]
  - GAIT DISTURBANCE [None]
  - HEAD TITUBATION [None]
  - IMMOBILE [None]
  - MUSCLE TWITCHING [None]
  - NAUSEA [None]
  - PANIC REACTION [None]
  - PARKINSONISM [None]
  - PERIPHERAL COLDNESS [None]
  - VERTIGO [None]
